FAERS Safety Report 24325810 (Version 1)
Quarter: 2024Q3

REPORT INFORMATION
  Report Type: Report from Study
  Country: US (occurrence: US)
  Receive Date: 20240917
  Receipt Date: 20240917
  Transmission Date: 20241017
  Serious: No
  Sender: SANDOZ
  Company Number: US-SANDOZ-SDZ2024US080280

PATIENT
  Age: 15 Year
  Sex: Male

DRUGS (2)
  1. OMNITROPE [Suspect]
     Active Substance: SOMATROPIN
     Indication: Hypopituitarism
     Dosage: 2.4 MG, OTHER 6 DAYS A WEEK
     Route: 058
     Dates: start: 20240913, end: 20240913
  2. OMNITROPE [Suspect]
     Active Substance: SOMATROPIN
     Indication: Hypopituitarism
     Dosage: 2.4 MG, OTHER 6 DAYS A WEEK
     Route: 058
     Dates: start: 20240913, end: 20240913

REACTIONS (2)
  - Feeling abnormal [Not Recovered/Not Resolved]
  - Injection site haemorrhage [Not Recovered/Not Resolved]

NARRATIVE: CASE EVENT DATE: 20240913
